FAERS Safety Report 6788318-9 (Version None)
Quarter: 2010Q2

REPORT INFORMATION
  Report Type: 
  Country: None (occurrence: None)
  Receive Date: 20100623
  Receipt Date: 20080418
  Transmission Date: 20101027
  Serious: No
  Sender: FDA-Public Use
  Company Number: US-PFIZER INC-2008012343

PATIENT
  Sex: Female
  Weight: 53.636 kg

DRUGS (2)
  1. DEPO-PROVERA SUSPENSION/INJ [Suspect]
     Indication: CONTRACEPTION
     Dosage: 150MG/ML
     Route: 030
     Dates: start: 20071001
  2. ANTI-ASTHMATICS [Concomitant]
     Indication: ASTHMA
     Route: 055

REACTIONS (2)
  - EYE SWELLING [None]
  - HEADACHE [None]
